FAERS Safety Report 9661248 (Version 2)
Quarter: 2013Q4

REPORT INFORMATION
  Report Type: Spontaneous
  Country: US (occurrence: US)
  Receive Date: 20131031
  Receipt Date: 20131031
  Transmission Date: 20140711
  Serious: Yes (Death, Hospitalization, Other)
  Sender: FDA-Public Use
  Company Number: US-SA-POMP-1002731

PATIENT
  Age: 68 Year
  Sex: Female

DRUGS (1)
  1. LUMIZYME [Suspect]
     Indication: GLYCOGEN STORAGE DISEASE TYPE II
     Dosage: 1350 MG, Q2W
     Route: 042
     Dates: start: 20100722, end: 20121127

REACTIONS (6)
  - Death [Fatal]
  - Influenza [Unknown]
  - Coma [Unknown]
  - Loss of consciousness [Unknown]
  - Pneumonia [Unknown]
  - Therapeutic response decreased [Unknown]
